FAERS Safety Report 8233476-2 (Version None)
Quarter: 2012Q1

REPORT INFORMATION
  Report Type: 
  Country: None (occurrence: None)
  Receive Date: 20120326
  Receipt Date: 20120316
  Transmission Date: 20120608
  Serious: Yes (Hospitalization, Other)
  Sender: FDA-Public Use
  Company Number: US-US-EMD SERONO, INC.-7021816

PATIENT
  Sex: Female
  Weight: 52 kg

DRUGS (4)
  1. TYLENOL [Concomitant]
     Indication: PREMEDICATION
  2. MULTI-VITAMINS [Concomitant]
     Indication: PRODUCT USED FOR UNKNOWN INDICATION
     Route: 048
  3. REBIF [Suspect]
     Indication: MULTIPLE SCLEROSIS
     Route: 058
     Dates: start: 20100901, end: 20101009
  4. AMANTANDINE [Concomitant]
     Indication: ASTHENIA
     Dates: start: 20100901

REACTIONS (3)
  - VIITH NERVE PARALYSIS [None]
  - MULTIPLE SCLEROSIS RELAPSE [None]
  - INJECTION SITE HAEMATOMA [None]
